FAERS Safety Report 12912930 (Version 2)
Quarter: 2016Q4

REPORT INFORMATION
  Report Type: Report from Study
  Country: BR (occurrence: BR)
  Receive Date: 20161104
  Receipt Date: 20161202
  Transmission Date: 20170207
  Serious: Yes (Hospitalization)
  Sender: FDA-Public Use
  Company Number: PHHY2013BR046665

PATIENT
  Age: 19 Year
  Sex: Male
  Weight: 52 kg

DRUGS (5)
  1. HYDREA [Concomitant]
     Active Substance: HYDROXYUREA
     Indication: SICKLE CELL ANAEMIA
     Dosage: 2 DF, QD (2 TABLETS A DAY, 500 MG)
     Route: 048
  2. FOLIC ACID. [Concomitant]
     Active Substance: FOLIC ACID
     Indication: SICKLE CELL ANAEMIA
     Dosage: 1 DF, QD (1 TABLET ADAY, 5 MG)
     Route: 048
  3. EXJADE [Suspect]
     Active Substance: DEFERASIROX
     Indication: SICKLE CELL ANAEMIA
     Dosage: 30 MG/KG, QD (3 DF OF 500 MG)
     Route: 048
  4. MORPHINE [Concomitant]
     Active Substance: MORPHINE
     Indication: PRODUCT USED FOR UNKNOWN INDICATION
     Route: 065
  5. XARELTO [Concomitant]
     Active Substance: RIVAROXABAN
     Indication: PAIN
     Dosage: 1 DF, QD (1 TABLETA DAY, 10 MG)
     Route: 048

REACTIONS (12)
  - Pain in extremity [Recovered/Resolved]
  - Sickle cell anaemia with crisis [Recovering/Resolving]
  - Vein disorder [Unknown]
  - Arterial thrombosis [Unknown]
  - Back pain [Recovered/Resolved]
  - Somnolence [Unknown]
  - Malaise [Unknown]
  - Arthralgia [Recovered/Resolved]
  - Sickle cell anaemia with crisis [Recovered/Resolved]
  - Pain [Recovered/Resolved]
  - Thrombosis [Recovered/Resolved]
  - Dizziness [Unknown]

NARRATIVE: CASE EVENT DATE: 20130505
